FAERS Safety Report 11368056 (Version 1)
Quarter: 2015Q3

REPORT INFORMATION
  Report Type: Spontaneous
  Country: US (occurrence: None)
  Receive Date: 20150811
  Receipt Date: 20150811
  Transmission Date: 20151125
  Serious: Yes (Hospitalization, Disabling)
  Sender: FDA-Public Use
  Company Number: None

PATIENT
  Age: 44 Year
  Sex: Male
  Weight: 81.65 kg

DRUGS (1)
  1. DILANTIN [Suspect]
     Active Substance: PHENYTOIN
     Indication: SEIZURE
     Dosage: 1
     Route: 048
     Dates: start: 1999, end: 2008

REACTIONS (6)
  - Burning sensation [None]
  - Depression [None]
  - Pruritus [None]
  - Economic problem [None]
  - Suicidal ideation [None]
  - Scar [None]

NARRATIVE: CASE EVENT DATE: 20150810
